FAERS Safety Report 23534316 (Version 2)
Quarter: 2024Q1

REPORT INFORMATION
  Report Type: Spontaneous
  Country: AU (occurrence: AU)
  Receive Date: 20240217
  Receipt Date: 20240228
  Transmission Date: 20240409
  Serious: Yes (Death, Hospitalization, Other)
  Sender: FDA-Public Use
  Company Number: AU-009507513-2402AUS004975

PATIENT
  Age: 58 Year
  Sex: Female

DRUGS (5)
  1. PEMBROLIZUMAB [Suspect]
     Active Substance: PEMBROLIZUMAB
     Indication: Endometrial cancer metastatic
     Dosage: 200 MILLIGRAM, Q3W
     Dates: start: 202012
  2. PEMBROLIZUMAB [Suspect]
     Active Substance: PEMBROLIZUMAB
     Dosage: 200 MILLIGRAM, Q3W
     Dates: start: 202207
  3. LENVATINIB MESYLATE [Suspect]
     Active Substance: LENVATINIB MESYLATE
     Indication: Endometrial cancer metastatic
     Dosage: 20 MILLIGRAM, QD
     Dates: start: 202012
  4. LENVATINIB MESYLATE [Suspect]
     Active Substance: LENVATINIB MESYLATE
     Dosage: 14 MILLIGRAM, FREQ: DAILY
     Dates: start: 202104
  5. LENVATINIB MESYLATE [Suspect]
     Active Substance: LENVATINIB MESYLATE
     Dosage: 10 MILLIGRAM, FREQ: QD.
     Dates: start: 202104

REACTIONS (14)
  - Acute kidney injury [Unknown]
  - Transient ischaemic attack [Unknown]
  - Cardiovascular disorder [Fatal]
  - Malignant neoplasm progression [Unknown]
  - Immune-mediated enterocolitis [Unknown]
  - Immune-mediated enterocolitis [Unknown]
  - Colitis microscopic [Unknown]
  - Stomatitis [Recovered/Resolved]
  - Blood thyroid stimulating hormone increased [Unknown]
  - Blood pressure increased [Unknown]
  - Gastritis [Unknown]
  - Decreased appetite [Recovered/Resolved]
  - Diarrhoea [Recovered/Resolved]
  - Fatigue [Unknown]

NARRATIVE: CASE EVENT DATE: 20201201
